FAERS Safety Report 4728839-3 (Version None)
Quarter: 2005Q3

REPORT INFORMATION
  Report Type: 
  Country: None (occurrence: None)
  Receive Date: 20050729
  Receipt Date: 20050721
  Transmission Date: 20060218
  Serious: Yes (Hospitalization)
  Sender: FDA-Public Use
  Company Number: US-SANOFI-SYNTHELABO-F03200500104

PATIENT
  Sex: Female
  Weight: 66.2 kg

DRUGS (5)
  1. ELOXATIN [Suspect]
     Indication: LUNG NEOPLASM MALIGNANT
     Route: 042
     Dates: start: 20050520, end: 20050520
  2. TAXOTERE [Suspect]
     Indication: LUNG NEOPLASM MALIGNANT
     Route: 042
     Dates: start: 20041216, end: 20050603
  3. COZAAR [Concomitant]
     Route: 065
  4. ZOCOR [Concomitant]
     Route: 065
  5. HYOSCYAMINE [Concomitant]
     Route: 065

REACTIONS (4)
  - DYSPNOEA [None]
  - FLUID OVERLOAD [None]
  - PERICARDIAL EFFUSION [None]
  - PLEURAL EFFUSION [None]
